FAERS Safety Report 18798253 (Version 1)
Quarter: 2021Q1

REPORT INFORMATION
  Report Type: Spontaneous
  Country: US (occurrence: US)
  Receive Date: 20210128
  Receipt Date: 20210128
  Transmission Date: 20210419
  Serious: Yes (Death, Hospitalization)
  Sender: FDA-Public Use
  Company Number: US-JNJFOC-20210139214

PATIENT
  Age: 75 Year
  Sex: Male

DRUGS (26)
  1. LEVAQUIN [Suspect]
     Active Substance: LEVOFLOXACIN
     Indication: CANDIDA INFECTION
     Dosage: UNK
     Route: 065
  2. VORICONAZOLE. [Suspect]
     Active Substance: VORICONAZOLE
     Indication: CANDIDA INFECTION
     Route: 065
  3. VORICONAZOLE. [Suspect]
     Active Substance: VORICONAZOLE
     Indication: PROPHYLAXIS
  4. MEROPENEM. [Suspect]
     Active Substance: MEROPENEM
     Indication: CANDIDA INFECTION
     Dosage: UNK
     Route: 065
  5. CASPOFUNGIN [Suspect]
     Active Substance: CASPOFUNGIN
     Indication: ANTIFUNGAL PROPHYLAXIS
  6. FLUCONAZOLE. [Suspect]
     Active Substance: FLUCONAZOLE
     Indication: CANDIDA INFECTION
     Route: 065
  7. FLUCONAZOLE. [Suspect]
     Active Substance: FLUCONAZOLE
     Indication: ANTIFUNGAL PROPHYLAXIS
  8. VALACICLOVIR HYDROCHLORIDE [Suspect]
     Active Substance: VALACYCLOVIR HYDROCHLORIDE
     Indication: PROPHYLAXIS
  9. CASPOFUNGIN [Suspect]
     Active Substance: CASPOFUNGIN
     Indication: CANDIDA INFECTION
     Dosage: UNK
     Route: 065
  10. FLUDARABINE [Concomitant]
     Active Substance: FLUDARABINE PHOSPHATE
     Route: 065
  11. DAPTOMYCIN. [Suspect]
     Active Substance: DAPTOMYCIN
     Indication: PROPHYLAXIS
  12. POSACONAZOLE [Suspect]
     Active Substance: POSACONAZOLE
     Indication: CANDIDA INFECTION
     Dosage: UNK
     Route: 065
  13. VORICONAZOLE. [Suspect]
     Active Substance: VORICONAZOLE
     Indication: ANTIFUNGAL PROPHYLAXIS
  14. DAPTOMYCIN. [Suspect]
     Active Substance: DAPTOMYCIN
     Indication: CANDIDA INFECTION
     Dosage: UNK
     Route: 065
  15. MEROPENEM. [Suspect]
     Active Substance: MEROPENEM
     Indication: ANTIFUNGAL PROPHYLAXIS
  16. VALACICLOVIR HYDROCHLORIDE [Suspect]
     Active Substance: VALACYCLOVIR HYDROCHLORIDE
     Indication: ANTIFUNGAL PROPHYLAXIS
  17. LEVAQUIN [Suspect]
     Active Substance: LEVOFLOXACIN
     Indication: ANTIFUNGAL PROPHYLAXIS
  18. POSACONAZOLE [Suspect]
     Active Substance: POSACONAZOLE
     Indication: PROPHYLAXIS
  19. MEROPENEM. [Suspect]
     Active Substance: MEROPENEM
     Indication: PROPHYLAXIS
  20. CASPOFUNGIN [Suspect]
     Active Substance: CASPOFUNGIN
     Indication: PROPHYLAXIS
  21. CYTARABINE. [Concomitant]
     Active Substance: CYTARABINE
     Route: 065
  22. FLUCONAZOLE. [Suspect]
     Active Substance: FLUCONAZOLE
     Indication: PROPHYLAXIS
  23. POSACONAZOLE [Suspect]
     Active Substance: POSACONAZOLE
     Indication: ANTIFUNGAL PROPHYLAXIS
  24. LEVAQUIN [Suspect]
     Active Substance: LEVOFLOXACIN
     Indication: PROPHYLAXIS
  25. DAPTOMYCIN. [Suspect]
     Active Substance: DAPTOMYCIN
     Indication: ANTIFUNGAL PROPHYLAXIS
  26. VALACICLOVIR HYDROCHLORIDE [Suspect]
     Active Substance: VALACYCLOVIR HYDROCHLORIDE
     Indication: CANDIDA INFECTION
     Dosage: UNK
     Route: 065

REACTIONS (8)
  - Candida infection [Fatal]
  - Off label use [Fatal]
  - Pneumonia [Fatal]
  - Drug ineffective for unapproved indication [Fatal]
  - Arthritis fungal [Fatal]
  - Septic shock [Fatal]
  - Cellulitis [Fatal]
  - Febrile neutropenia [Fatal]
